FAERS Safety Report 6087955-7 (Version None)
Quarter: 2009Q1

REPORT INFORMATION
  Report Type: 
  Country: None (occurrence: None)
  Receive Date: 20090219
  Receipt Date: 20090211
  Transmission Date: 20090719
  Serious: No
  Sender: FDA-Public Use
  Company Number: TRP_06061_2009

PATIENT
  Age: 49 Year
  Sex: Female

DRUGS (5)
  1. RIBASPHERE [Suspect]
     Indication: HEPATITIS C
  2. PEGASYS [Suspect]
     Indication: HEPATITIS C
  3. SYNTHROID [Concomitant]
  4. LEXAPRO [Concomitant]
  5. LORAZEPAM [Concomitant]

REACTIONS (6)
  - COUGH [None]
  - DEPRESSION [None]
  - DISTURBANCE IN ATTENTION [None]
  - DYSPNOEA [None]
  - PANIC ATTACK [None]
  - PLATELET COUNT DECREASED [None]
